FAERS Safety Report 6413385-1 (Version None)
Quarter: 2009Q4

REPORT INFORMATION
  Report Type: 
  Country: None (occurrence: None)
  Receive Date: 20091020
  Receipt Date: 20091007
  Transmission Date: 20100525
  Serious: Yes (Hospitalization)
  Sender: FDA-Public Use
  Company Number: 2009-02709

PATIENT
  Age: 65 Year
  Sex: Male
  Weight: 68 kg

DRUGS (3)
  1. VELCADE [Suspect]
     Indication: MULTIPLE MYELOMA
     Dosage: 1.3 MG/M2, UNK, INTRAVENOUS
     Route: 042
     Dates: start: 20090112, end: 20090202
  2. THALIDOMIDE [Concomitant]
  3. DEXAMETHASONE [Concomitant]

REACTIONS (2)
  - GUILLAIN-BARRE SYNDROME [None]
  - TOXIC SKIN ERUPTION [None]
